FAERS Safety Report 6152229-2 (Version None)
Quarter: 2009Q2

REPORT INFORMATION
  Report Type: 
  Country: None (occurrence: None)
  Receive Date: 20090410
  Receipt Date: 20090403
  Transmission Date: 20091009
  Serious: Yes (Other)
  Sender: FDA-Public Use
  Company Number: CA-JNJCH-2009007015

PATIENT
  Sex: Male
  Weight: 81.6 kg

DRUGS (1)
  1. REACTINE ALLERGY + SINUS [Suspect]
     Indication: HYPERSENSITIVITY
     Dosage: TEXT:1 TABLET ONCE
     Route: 048
     Dates: start: 20090310, end: 20090310

REACTIONS (3)
  - DYSPHAGIA [None]
  - DYSPNOEA [None]
  - THROAT TIGHTNESS [None]
